FAERS Safety Report 7272143-9 (Version None)
Quarter: 2011Q1

REPORT INFORMATION
  Report Type: 
  Country: None (occurrence: None)
  Receive Date: 20110128
  Receipt Date: 20110113
  Transmission Date: 20110831
  Serious: Yes (Life-Threatening, Hospitalization, Other)
  Sender: FDA-Public Use
  Company Number: AUR-APL-2010-01584

PATIENT
  Age: 89 Year
  Sex: Male
  Weight: 92 kg

DRUGS (2)
  1. SIMVASTATIN [Suspect]
     Dosage: 40MG, DAILY, ORAL
     Route: 048
     Dates: start: 20080101, end: 20100401
  2. CORDAREX 200MG TABLET [Suspect]
     Dosage: 200 OR 300MG, TID, ORAL
     Route: 048
     Dates: start: 20000101, end: 20100306

REACTIONS (4)
  - DRUG INTERACTION [None]
  - RENAL FAILURE ACUTE [None]
  - RHABDOMYOLYSIS [None]
  - DIALYSIS [None]
